FAERS Safety Report 17948326 (Version 1)
Quarter: 2020Q2

REPORT INFORMATION
  Report Type: Spontaneous
  Country: DK (occurrence: DK)
  Receive Date: 20200626
  Receipt Date: 20200626
  Transmission Date: 20200714
  Serious: Yes (Other)
  Sender: FDA-Public Use
  Company Number: DK-PFIZER INC-2020245375

PATIENT
  Age: 18 Year
  Sex: Female
  Weight: 65 kg

DRUGS (1)
  1. ZESSLY [Suspect]
     Active Substance: INFLIXIMAB
     Indication: CROHN^S DISEASE
     Dosage: 350 MG
     Route: 042
     Dates: start: 20200324, end: 20200416

REACTIONS (3)
  - Pancreatitis acute [Not Recovered/Not Resolved]
  - Abdominal pain [Unknown]
  - Amylase increased [Unknown]

NARRATIVE: CASE EVENT DATE: 20200324
